FAERS Safety Report 21626073 (Version 1)
Quarter: 2022Q4

REPORT INFORMATION
  Report Type: Spontaneous
  Country: US (occurrence: None)
  Receive Date: 20221122
  Receipt Date: 20221122
  Transmission Date: 20230112
  Serious: No
  Sender: FDA-Public Use
  Company Number: US-ROCHE-2959935

PATIENT
  Age: 4 Year
  Sex: Male
  Weight: 15.4 kg

DRUGS (1)
  1. PULMOZYME [Suspect]
     Active Substance: DORNASE ALFA
     Indication: Myopathy
     Dosage: 1 VIAL (2.5 MG) ONCE A DAY
     Route: 065
     Dates: start: 20211107, end: 20211113

REACTIONS (6)
  - Intentional product use issue [Unknown]
  - Product temperature excursion issue [Unknown]
  - Poor quality product administered [Unknown]
  - Increased upper airway secretion [Unknown]
  - Cough [Unknown]
  - Abdominal pain upper [Unknown]

NARRATIVE: CASE EVENT DATE: 20211107
